FAERS Safety Report 24349185 (Version 1)
Quarter: 2024Q3

REPORT INFORMATION
  Report Type: Spontaneous
  Country: NL (occurrence: NL)
  Receive Date: 20240923
  Receipt Date: 20240923
  Transmission Date: 20241017
  Serious: Yes (Death)
  Sender: AUROBINDO
  Company Number: NL-LRB-01003223

PATIENT
  Age: 72 Year
  Sex: Male
  Weight: 70 kg

DRUGS (3)
  1. FLUCLOXACILLIN [Interacting]
     Active Substance: FLUCLOXACILLIN
     Indication: Bacteraemia
     Dosage: 2 GRAM, ONCE A DAY,(CHARGE 2 GRAMS AND THEN 12G/24 HOURS CONTINUOUSLY)
     Route: 065
     Dates: start: 20240331, end: 20240424
  2. FLUCLOXACILLIN [Interacting]
     Active Substance: FLUCLOXACILLIN
     Dosage: 12 GRAM, ONCE A DAY (CHARGE 2 GRAMS AND THEN 12G/24 HOURS CONTINUOUSLY)
     Route: 065
     Dates: start: 20240331, end: 20240424
  3. ACETAMINOPHEN [Interacting]
     Active Substance: ACETAMINOPHEN
     Indication: Pain
     Dosage: 1000 MILLIGRAM, FOUR TIMES/DAY
     Route: 065
     Dates: start: 20240330, end: 20240424

REACTIONS (2)
  - Metabolic acidosis [Fatal]
  - Drug interaction [Fatal]

NARRATIVE: CASE EVENT DATE: 20240423
